FAERS Safety Report 6255772-0 (Version None)
Quarter: 2009Q3

REPORT INFORMATION
  Report Type: 
  Country: None (occurrence: None)
  Receive Date: 20090701
  Receipt Date: 20090618
  Transmission Date: 20100115
  Serious: Yes (Disabling)
  Sender: FDA-Public Use
  Company Number: 2009-199130-NL

PATIENT
  Age: 21 Year
  Sex: Female

DRUGS (1)
  1. ETONOGESTREL [Suspect]
     Indication: CONTRACEPTION
     Dosage: DF
     Dates: start: 20070220

REACTIONS (5)
  - DIZZINESS [None]
  - HEADACHE [None]
  - HEMIPLEGIA [None]
  - MIGRAINE [None]
  - MUSCULAR WEAKNESS [None]
